FAERS Safety Report 6675078-5 (Version None)
Quarter: 2010Q1

REPORT INFORMATION
  Report Type: 
  Country: None (occurrence: None)
  Receive Date: 20100331
  Receipt Date: 20091008
  Transmission Date: 20100710
  Serious: Yes (Other)
  Sender: FDA-Public Use
  Company Number: 2009259455

PATIENT

DRUGS (1)
  1. SUTENT [Suspect]

REACTIONS (5)
  - FATIGUE [None]
  - HEPATIC FUNCTION ABNORMAL [None]
  - NAUSEA [None]
  - RENAL FAILURE [None]
  - VOMITING [None]
